FAERS Safety Report 5038810-2 (Version None)
Quarter: 2006Q2

REPORT INFORMATION
  Report Type: 
  Country: None (occurrence: None)
  Receive Date: 20060629
  Receipt Date: 20060619
  Transmission Date: 20061013
  Serious: Yes (Hospitalization)
  Sender: FDA-Public Use
  Company Number: FR-BRISTOL-MYERS SQUIBB COMPANY-13416417

PATIENT
  Age: 53 Year
  Sex: Female
  Weight: 65 kg

DRUGS (2)
  1. TAXOL [Suspect]
     Indication: OVARIAN CANCER
     Route: 042
     Dates: start: 20060517, end: 20060517
  2. CARBOPLATIN [Concomitant]
     Route: 042

REACTIONS (4)
  - BLOOD PRESSURE INCREASED [None]
  - BRONCHOSPASM [None]
  - CHILLS [None]
  - CYANOSIS [None]
